FAERS Safety Report 5032775-5 (Version None)
Quarter: 2006Q2

REPORT INFORMATION
  Report Type: 
  Country: None (occurrence: None)
  Receive Date: 20060515
  Receipt Date: 20060208
  Transmission Date: 20061013
  Serious: No
  Sender: FDA-Public Use
  Company Number: S06-USA-00485-01

PATIENT
  Age: 88 Year
  Sex: Female

DRUGS (8)
  1. NAMENDA [Suspect]
     Indication: DEMENTIA
     Dosage: 10 MG QD PO
     Route: 048
     Dates: start: 20051130, end: 20060112
  2. NAMENDA [Suspect]
     Indication: DEMENTIA
     Dosage: 5 MG QD PO
     Route: 048
     Dates: start: 20051108, end: 20051129
  3. PAXIL [Concomitant]
  4. CELEBREX [Concomitant]
  5. DIOVAN [Concomitant]
  6. ARICEPT [Concomitant]
  7. TIMOLOL MALEATE [Concomitant]
  8. FOSAMAX [Concomitant]

REACTIONS (1)
  - ANXIETY [None]
